FAERS Safety Report 6802733-6 (Version None)
Quarter: 2010Q2

REPORT INFORMATION
  Report Type: 
  Country: None (occurrence: None)
  Receive Date: 20100628
  Receipt Date: 20100628
  Transmission Date: 20101027
  Serious: Yes (Disabling)
  Sender: FDA-Public Use
  Company Number: None

PATIENT
  Sex: Female
  Weight: 43.0917 kg

DRUGS (2)
  1. TRAZODONE HYDROCHLORIDE [Suspect]
     Indication: SLEEP DISORDER THERAPY
  2. CELEBREX [Suspect]
     Indication: CHEST PAIN

REACTIONS (7)
  - ANXIETY [None]
  - HYPOTENSION [None]
  - POSTURE ABNORMAL [None]
  - SKIN DISCOLOURATION [None]
  - STARING [None]
  - SUICIDAL IDEATION [None]
  - UNRESPONSIVE TO STIMULI [None]
